FAERS Safety Report 11412778 (Version 1)
Quarter: 2015Q3

REPORT INFORMATION
  Report Type: Spontaneous
  Country: US (occurrence: US)
  Receive Date: 20150821
  Receipt Date: 20150821
  Transmission Date: 20151125
  Serious: No
  Sender: FDA-Public Use
  Company Number: US-ELI_LILLY_AND_COMPANY-US201205009723

PATIENT
  Age: 79 Year
  Sex: Female

DRUGS (3)
  1. HUMULIN R [Suspect]
     Active Substance: INSULIN HUMAN
     Indication: DIABETES MELLITUS
     Dosage: UNK, UNKNOWN
  2. JANUVIA [Concomitant]
     Active Substance: SITAGLIPTIN PHOSPHATE
  3. PRANDIN [Concomitant]
     Active Substance: REPAGLINIDE
     Dosage: UNK

REACTIONS (10)
  - Nervousness [Unknown]
  - Asthenia [Unknown]
  - Anxiety [Unknown]
  - Dyspnoea [Unknown]
  - Disorientation [Unknown]
  - Dizziness [Unknown]
  - Headache [Unknown]
  - Feeling of despair [Unknown]
  - Vision blurred [Unknown]
  - Local swelling [Unknown]

NARRATIVE: CASE EVENT DATE: 20120524
